FAERS Safety Report 10281990 (Version 1)
Quarter: 2014Q3

REPORT INFORMATION
  Report Type: Spontaneous
  Country: US (occurrence: US)
  Receive Date: 20140707
  Receipt Date: 20140707
  Transmission Date: 20150326
  Serious: Yes (Hospitalization)
  Sender: FDA-Public Use
  Company Number: US-GLAXOSMITHKLINE-A1013249A

PATIENT
  Age: 74 Year
  Sex: Male

DRUGS (2)
  1. ADVAIR HFA [Suspect]
     Active Substance: FLUTICASONE PROPIONATE\SALMETEROL XINAFOATE
     Indication: ASTHMA
     Dosage: 1PUFF TWICE PER DAY
     Route: 055
     Dates: start: 2006
  2. AVAPRO [Concomitant]
     Active Substance: IRBESARTAN

REACTIONS (3)
  - Stomatitis [Unknown]
  - Stent placement [Unknown]
  - Cardiac operation [Unknown]

NARRATIVE: CASE EVENT DATE: 201209
